FAERS Safety Report 9464108 (Version 11)
Quarter: 2015Q2

REPORT INFORMATION
  Report Type: Report from Study
  Country: US (occurrence: US)
  Receive Date: 20130819
  Receipt Date: 20150515
  Transmission Date: 20150821
  Serious: Yes (Disabling, Other)
  Sender: FDA-Public Use
  Company Number: US-SANOFI-AVENTIS-2013SA081947

PATIENT
  Age: 63 Year
  Sex: Female

DRUGS (7)
  1. AUBAGIO [Suspect]
     Active Substance: TERIFLUNOMIDE
     Indication: RELAPSING-REMITTING MULTIPLE SCLEROSIS
     Route: 048
     Dates: start: 20130308
  2. AUBAGIO [Suspect]
     Active Substance: TERIFLUNOMIDE
     Indication: RELAPSING-REMITTING MULTIPLE SCLEROSIS
     Route: 048
     Dates: start: 20140308
  3. CRESTOR [Concomitant]
     Active Substance: ROSUVASTATIN CALCIUM
  4. LISINOPRIL. [Concomitant]
     Active Substance: LISINOPRIL
     Dosage: 40 MG
  5. HYDROXYZINE [Concomitant]
     Active Substance: HYDROXYZINE\HYDROXYZINE HYDROCHLORIDE
     Dosage: 100 MG
  6. AUBAGIO [Suspect]
     Active Substance: TERIFLUNOMIDE
     Indication: RELAPSING-REMITTING MULTIPLE SCLEROSIS
     Route: 048
  7. AMLODIPINE [Concomitant]
     Active Substance: AMLODIPINE BESYLATE
     Dosage: 25 MG

REACTIONS (18)
  - Multiple sclerosis [Unknown]
  - Musculoskeletal pain [Unknown]
  - Pain [Unknown]
  - Wheelchair user [Recovering/Resolving]
  - Mobility decreased [Recovering/Resolving]
  - Vertigo [Recovering/Resolving]
  - Fatigue [Unknown]
  - Nasal congestion [Unknown]
  - Hearing impaired [Unknown]
  - Gait disturbance [Recovering/Resolving]
  - Memory impairment [Unknown]
  - Screaming [Recovering/Resolving]
  - Fall [Unknown]
  - Drug dose omission [Unknown]
  - Peroneal nerve palsy [Unknown]
  - Laser therapy [Unknown]
  - Malaise [Unknown]
  - Cognitive disorder [Unknown]

NARRATIVE: CASE EVENT DATE: 2013
